FAERS Safety Report 19131784 (Version 2)
Quarter: 2021Q2

REPORT INFORMATION
  Report Type: Report from Study
  Country: NL (occurrence: NL)
  Receive Date: 20210414
  Receipt Date: 20210525
  Transmission Date: 20210717
  Serious: Yes (Hospitalization, Other)
  Sender: FDA-Public Use
  Company Number: NVSC2021NL079652

PATIENT
  Age: 4 Year
  Sex: Female
  Weight: 12 kg

DRUGS (2)
  1. TRAMETINIB [Suspect]
     Active Substance: TRAMETINIB
     Indication: GLIOMA
  2. TRAMETINIB [Suspect]
     Active Substance: TRAMETINIB
     Indication: ASTROCYTOMA
     Dosage: 0.375 MG
     Route: 048
     Dates: start: 20191212, end: 20210402

REACTIONS (8)
  - Pain [Unknown]
  - Erythema [Unknown]
  - Drug ineffective [Unknown]
  - Malignant neoplasm progression [Unknown]
  - Astrocytoma, low grade [Unknown]
  - Erysipelas [Recovered/Resolved]
  - Feeling hot [Unknown]
  - Pyrexia [Unknown]

NARRATIVE: CASE EVENT DATE: 20210402
